FAERS Safety Report 14820403 (Version 1)
Quarter: 2018Q2

REPORT INFORMATION
  Report Type: Spontaneous
  Country: PT (occurrence: PT)
  Receive Date: 20180427
  Receipt Date: 20180427
  Transmission Date: 20180711
  Serious: Yes (Other)
  Sender: FDA-Public Use
  Company Number: PT-BAYER-2018-080307

PATIENT
  Age: 76 Year
  Sex: Female
  Weight: 80 kg

DRUGS (1)
  1. ULTRAVIST [Suspect]
     Active Substance: IOPROMIDE
     Indication: COMPUTERISED TOMOGRAM
     Dosage: 56070 MG, ONCE
     Route: 042
     Dates: start: 20180412, end: 20180412

REACTIONS (3)
  - Productive cough [Recovered/Resolved]
  - Throat irritation [Recovered/Resolved]
  - Contrast media reaction [Recovered/Resolved]

NARRATIVE: CASE EVENT DATE: 20180412
